FAERS Safety Report 13960729 (Version 1)
Quarter: 2017Q3

REPORT INFORMATION
  Report Type: Spontaneous
  Country: BR (occurrence: BR)
  Receive Date: 20170912
  Receipt Date: 20170912
  Transmission Date: 20171128
  Serious: Yes (Hospitalization)
  Sender: FDA-Public Use
  Company Number: BR-PFIZER INC-2017388512

PATIENT
  Age: 70 Year
  Sex: Female

DRUGS (2)
  1. LIPITOR [Suspect]
     Active Substance: ATORVASTATIN CALCIUM
     Dosage: UNK
     Dates: start: 201707
  2. LIPITOR [Suspect]
     Active Substance: ATORVASTATIN CALCIUM
     Indication: BLOOD CHOLESTEROL
     Dosage: ONE TABLET OF STRENGTH 20MG PER DAY
     Dates: start: 2012

REACTIONS (4)
  - Cerebrovascular accident [Unknown]
  - Vomiting [Unknown]
  - Intentional product misuse [Unknown]
  - Balance disorder [Unknown]

NARRATIVE: CASE EVENT DATE: 20170830
